FAERS Safety Report 15599397 (Version 1)
Quarter: 2018Q4

REPORT INFORMATION
  Report Type: Spontaneous
  Country: GB (occurrence: GB)
  Receive Date: 20181108
  Receipt Date: 20181108
  Transmission Date: 20190205
  Serious: Yes (Other)
  Sender: FDA-Public Use
  Company Number: PHHY2018GB148225

PATIENT
  Sex: Female

DRUGS (17)
  1. DEXAMETHASONE. [Concomitant]
     Active Substance: DEXAMETHASONE
     Indication: PRODUCT USED FOR UNKNOWN INDICATION
     Dosage: 4 MG, QD (THREE DAYS PRIOR TO CHEMOTHERAPY)
     Route: 048
     Dates: start: 20150803, end: 20150805
  2. DOCETAXEL. [Suspect]
     Active Substance: DOCETAXEL
     Indication: HER-2 POSITIVE BREAST CANCER
     Dosage: 86 MG, TIW
     Route: 042
     Dates: start: 20150828
  3. PERTUZUMAB. [Suspect]
     Active Substance: PERTUZUMAB
     Indication: BREAST CANCER METASTATIC
     Dosage: 420 MG, TIW
     Route: 042
     Dates: start: 20150603, end: 20150807
  4. TRASTUZUMAB. [Suspect]
     Active Substance: TRASTUZUMAB
     Dosage: 400 MG, TIW (LOADING DOSE)
     Route: 042
     Dates: start: 20150513, end: 20150513
  5. DEXAMETHASONE. [Concomitant]
     Active Substance: DEXAMETHASONE
     Indication: PRODUCT USED FOR UNKNOWN INDICATION
     Dosage: 20 ML, QD (LIQUID)
     Route: 047
     Dates: start: 20150714, end: 20150923
  6. TRASTUZUMAB EMTANSINE [Suspect]
     Active Substance: ADO-TRASTUZUMAB EMTANSINE
     Indication: BREAST CANCER METASTATIC
     Dosage: 184 MG, TIW
     Route: 042
     Dates: start: 20160426, end: 20160720
  7. TRASTUZUMAB. [Suspect]
     Active Substance: TRASTUZUMAB
     Dosage: 275 MG, TIW
     Route: 042
     Dates: start: 20150818, end: 20151211
  8. RANITIDINE. [Concomitant]
     Active Substance: RANITIDINE
     Indication: PRODUCT USED FOR UNKNOWN INDICATION
     Dosage: 300 MG, QD
     Route: 048
     Dates: start: 20150825, end: 20150827
  9. TRASTUZUMAB. [Suspect]
     Active Substance: TRASTUZUMAB
     Indication: BREAST CANCER METASTATIC
     Dosage: 300 MG, TIW
     Route: 042
     Dates: start: 20150603, end: 20150804
  10. TRASTUZUMAB EMTANSINE [Suspect]
     Active Substance: ADO-TRASTUZUMAB EMTANSINE
     Dosage: 148 MG, UNK
     Route: 042
     Dates: start: 20160810
  11. CETIRIZINE [Concomitant]
     Active Substance: CETIRIZINE HYDROCHLORIDE
     Indication: PRODUCT USED FOR UNKNOWN INDICATION
     Dosage: 10 MG, UNK
     Route: 048
  12. CLAVULANIC ACID [Concomitant]
     Active Substance: CLAVULANIC ACID
     Indication: INFECTION
     Dosage: 375 MG, QD
     Route: 048
     Dates: start: 20150804, end: 20150810
  13. DOCETAXEL. [Suspect]
     Active Substance: DOCETAXEL
     Dosage: 92 MG, TIW
     Route: 042
     Dates: start: 20150514
  14. DOMPERIDONE [Concomitant]
     Active Substance: DOMPERIDONE
     Indication: PROPHYLAXIS
     Route: 048
     Dates: start: 20150803, end: 20150805
  15. TRASTUZUMAB. [Suspect]
     Active Substance: TRASTUZUMAB
     Dosage: 300 MG, UNK
     Route: 042
     Dates: start: 20160108, end: 20160405
  16. AMOXYCILLIN [Concomitant]
     Active Substance: AMOXICILLIN
     Indication: INFECTION
     Dosage: 1500 MG, QD
     Route: 048
     Dates: start: 20150804, end: 20150810
  17. RANITIDINE. [Concomitant]
     Active Substance: RANITIDINE
     Dosage: 300 MG, UNK
     Route: 048
     Dates: start: 20150805, end: 20150807

REACTIONS (15)
  - Catheter site haemorrhage [Recovered/Resolved]
  - Neuropathy peripheral [Not Recovered/Not Resolved]
  - Anaphylactic reaction [Recovered/Resolved]
  - Lacrimation increased [Not Recovered/Not Resolved]
  - Ejection fraction decreased [Unknown]
  - Nail dystrophy [Not Recovered/Not Resolved]
  - Dry skin [Recovered/Resolved]
  - Fatigue [Recovered/Resolved]
  - Pruritus [Recovered/Resolved]
  - Panic attack [Not Recovered/Not Resolved]
  - Memory impairment [Recovered/Resolved]
  - Insomnia [Not Recovered/Not Resolved]
  - Axillary pain [Unknown]
  - Chest discomfort [Recovered/Resolved]
  - Constipation [Not Recovered/Not Resolved]

NARRATIVE: CASE EVENT DATE: 20150716
